FAERS Safety Report 17061907 (Version 1)
Quarter: 2019Q4

REPORT INFORMATION
  Report Type: Spontaneous
  Country: None (occurrence: US)
  Receive Date: 20191121
  Receipt Date: 20191121
  Transmission Date: 20200122
  Serious: No
  Sender: FDA-Public Use
  Company Number: US-AMPHASTAR PHARMACEUTICALS, INC.-2077107

PATIENT
  Age: 78 Year
  Sex: Male
  Weight: 81.82 kg

DRUGS (5)
  1. HYDROCHLOROTHIAZIDE. [Concomitant]
     Active Substance: HYDROCHLOROTHIAZIDE
  2. ENALAPRIL [Concomitant]
     Active Substance: ENALAPRIL
  3. ENOXAPARIN SODIUM. [Suspect]
     Active Substance: ENOXAPARIN SODIUM
     Indication: THROMBOSIS PROPHYLAXIS
     Dates: start: 20190911
  4. AMLODIPINE [Concomitant]
     Active Substance: AMLODIPINE BESYLATE
  5. UNSPECIFIED BLOOD PRESSURE MEDICATIONS. [Concomitant]

REACTIONS (2)
  - Injection site bruising [Unknown]
  - Injection site nodule [Unknown]

NARRATIVE: CASE EVENT DATE: 20190911
